FAERS Safety Report 5163600-X (Version None)
Quarter: 2006Q4

REPORT INFORMATION
  Report Type: 
  Country: None (occurrence: None)
  Receive Date: 20061124
  Receipt Date: 20061110
  Transmission Date: 20070319
  Serious: Yes (Other)
  Sender: FDA-Public Use
  Company Number: 2006142009

PATIENT
  Age: 82 Year
  Sex: Female

DRUGS (4)
  1. LYRICA [Suspect]
     Indication: POST HERPETIC NEURALGIA
     Dosage: 100 MG (50 MG, 2 IN 1 D), ORAL
     Route: 048
     Dates: start: 20050101
  2. SYNTHROID [Concomitant]
  3. ZOCOR [Concomitant]
  4. ALLEGRA-D 12 HOUR [Concomitant]

REACTIONS (3)
  - BONE FORMATION INCREASED [None]
  - LYMPHOMA [None]
  - WEIGHT INCREASED [None]
